FAERS Safety Report 23719260 (Version 1)
Quarter: 2024Q2

REPORT INFORMATION
  Report Type: Spontaneous
  Country: CN (occurrence: CN)
  Receive Date: 20240408
  Receipt Date: 20240408
  Transmission Date: 20240716
  Serious: Yes (Other)
  Sender: FDA-Public Use
  Company Number: CN-JNJFOC-20240401027

PATIENT
  Age: 72 Year
  Sex: Male

DRUGS (2)
  1. DARZALEX [Suspect]
     Active Substance: DARATUMUMAB
     Indication: Plasma cell myeloma
     Dosage: INITIAL 50ML/H, AND THE INFUSION RATE WAS INCREASED TO 80ML/H 1 HOUR LATER.
     Route: 041
     Dates: start: 20240222
  2. DARZALEX [Suspect]
     Active Substance: DARATUMUMAB
     Dosage: ADMINISTERED AT 50 ML/H
     Route: 041
     Dates: start: 20240307

REACTIONS (7)
  - Chills [Recovering/Resolving]
  - Dyspnoea [Recovering/Resolving]
  - Cough [Recovering/Resolving]
  - Infusion related reaction [Recovering/Resolving]
  - Wheezing [Recovering/Resolving]
  - Chest discomfort [Recovering/Resolving]
  - Tachypnoea [Recovering/Resolving]

NARRATIVE: CASE EVENT DATE: 20240222
